FAERS Safety Report 7623352-8 (Version None)
Quarter: 2011Q3

REPORT INFORMATION
  Report Type: 
  Country: None (occurrence: None)
  Receive Date: 20110720
  Receipt Date: 20110704
  Transmission Date: 20111222
  Serious: Yes (Hospitalization)
  Sender: FDA-Public Use
  Company Number: CA-ROCHE-788042

PATIENT
  Sex: Male
  Weight: 67 kg

DRUGS (7)
  1. MULTI-VITAMIN [Concomitant]
  2. VIT D [Concomitant]
  3. TOCILIZUMAB [Suspect]
     Indication: RHEUMATOID ARTHRITIS
     Route: 042
     Dates: start: 20100922, end: 20110616
  4. FOLIC ACID [Concomitant]
  5. TRAMADOL HYDROCHLORIDE/ACETAMINOPHEN [Concomitant]
  6. PREDNISONE [Concomitant]
  7. CALCIUM CARBONATE [Concomitant]

REACTIONS (6)
  - CHEST PAIN [None]
  - NAUSEA [None]
  - INFECTION [None]
  - ABDOMINAL PAIN [None]
  - HEADACHE [None]
  - LEUKOCYTOSIS [None]
